FAERS Safety Report 18737425 (Version 1)
Quarter: 2021Q1

REPORT INFORMATION
  Report Type: Spontaneous
  Country: CN (occurrence: CN)
  Receive Date: 20210113
  Receipt Date: 20210113
  Transmission Date: 20210419
  Serious: Yes (Other)
  Sender: FDA-Public Use
  Company Number: CN-BRACCO-2021CN00082

PATIENT
  Age: 76 Year
  Sex: Male

DRUGS (1)
  1. IOPAMIDOL [Suspect]
     Active Substance: IOPAMIDOL
     Indication: COMPUTERISED TOMOGRAM ABDOMEN
     Dosage: 100 ML, SINGLE
     Route: 042
     Dates: start: 20201229, end: 20201229

REACTIONS (3)
  - Blood creatinine increased [Recovering/Resolving]
  - Oliguria [Recovering/Resolving]
  - Anuria [Recovering/Resolving]

NARRATIVE: CASE EVENT DATE: 20201230
